FAERS Safety Report 8414153-1 (Version None)
Quarter: 2012Q2

REPORT INFORMATION
  Report Type: 
  Country: None (occurrence: None)
  Receive Date: 20120605
  Receipt Date: 20120525
  Transmission Date: 20120825
  Serious: No
  Sender: FDA-Public Use
  Company Number: US-ASTRAZENECA-2012SE25226

PATIENT
  Age: 58 Year
  Sex: Male

DRUGS (1)
  1. SEROQUEL [Suspect]
     Indication: SLEEP DISORDER
     Route: 048

REACTIONS (7)
  - ABNORMAL BEHAVIOUR [None]
  - MALAISE [None]
  - PAIN [None]
  - MENTAL IMPAIRMENT [None]
  - INSOMNIA [None]
  - DRUG DOSE OMISSION [None]
  - FEELING ABNORMAL [None]
